FAERS Safety Report 6621630-2 (Version None)
Quarter: 2010Q1

REPORT INFORMATION
  Report Type: 
  Country: None (occurrence: None)
  Receive Date: 20100309
  Receipt Date: 20100304
  Transmission Date: 20100710
  Serious: Yes (Hospitalization)
  Sender: FDA-Public Use
  Company Number: JP-ABBOTT-10P-087-0626089-00

PATIENT
  Age: 86 Year
  Sex: Male
  Weight: 60 kg

DRUGS (5)
  1. LEUPROLIDE ACETATE [Suspect]
     Indication: PROSTATE CANCER
     Route: 058
     Dates: start: 20070112, end: 20071221
  2. LEUPROLIDE ACETATE [Suspect]
     Route: 058
     Dates: start: 20080430
  3. LEUPROLIDE ACETATE [Suspect]
     Dates: start: 20061206, end: 20061206
  4. BICALUTAMIDE [Concomitant]
     Indication: PROSTATE CANCER
     Dates: end: 20070623
  5. FLIVAS [Concomitant]
     Indication: BENIGN PROSTATIC HYPERPLASIA
     Route: 048
     Dates: start: 20071221

REACTIONS (2)
  - HYPERHIDROSIS [None]
  - PYELONEPHRITIS ACUTE [None]
